FAERS Safety Report 15778055 (Version 5)
Quarter: 2019Q1

REPORT INFORMATION
  Report Type: Spontaneous
  Country: RU (occurrence: RU)
  Receive Date: 20181231
  Receipt Date: 20190326
  Transmission Date: 20190417
  Serious: Yes (Hospitalization, Other)
  Sender: FDA-Public Use
  Company Number: RU-BRISTOL-MYERS SQUIBB COMPANY-BMS-2018-120904

PATIENT
  Age: 54 Year
  Sex: Male
  Weight: 91 kg

DRUGS (8)
  1. SPIRONOLACTONE. [Concomitant]
     Active Substance: SPIRONOLACTONE
     Indication: ASCITES
     Route: 065
  2. RIBAVARIN [Suspect]
     Active Substance: RIBAVIRIN
     Indication: CHRONIC HEPATITIS C
     Dosage: 600 MG, QD
     Route: 048
     Dates: start: 20160106, end: 20160622
  3. SOVALDI [Suspect]
     Active Substance: SOFOSBUVIR
     Indication: CHRONIC HEPATITIS C
     Dosage: 400 MG, QD
     Route: 048
     Dates: start: 20160106, end: 20160622
  4. CHENODEOXYCHOLIC ACID [Concomitant]
     Active Substance: CHENODIOL
     Indication: CHOLESTASIS
     Dosage: 500 MG, QD
     Route: 048
  5. SPIRONOLACTONE. [Concomitant]
     Active Substance: SPIRONOLACTONE
     Indication: OEDEMA
     Dosage: 100 MG, QD
     Route: 048
  6. ADVAGRAF [Concomitant]
     Active Substance: TACROLIMUS
     Indication: LIVER TRANSPLANT
     Dosage: 1.5 G, QD
     Route: 048
     Dates: start: 2013
  7. DACLATASVIR DIHYDROCHLORIDE [Suspect]
     Active Substance: DACLATASVIR DIHYDROCHLORIDE
     Indication: CHRONIC HEPATITIS C
     Dosage: 60 MG, QD
     Route: 048
     Dates: start: 20160106, end: 20160622
  8. CHENODEOXYCHOLIC ACID [Concomitant]
     Active Substance: CHENODIOL
     Indication: ASCITES
     Route: 065

REACTIONS (7)
  - Oedema [Recovered/Resolved]
  - Oliguria [Recovered/Resolved]
  - Gastric disorder [Unknown]
  - Hypoalbuminaemia [Unknown]
  - Ascites [Recovered/Resolved]
  - Hepatic failure [Unknown]
  - Hepatic cirrhosis [Recovered/Resolved]

NARRATIVE: CASE EVENT DATE: 20160228
